FAERS Safety Report 13760855 (Version 1)
Quarter: 2017Q3

REPORT INFORMATION
  Report Type: Spontaneous
  Country: US (occurrence: US)
  Receive Date: 20170717
  Receipt Date: 20170717
  Transmission Date: 20171127
  Serious: No
  Sender: FDA-Public Use
  Company Number: US-ALLERGAN-1000085654

PATIENT
  Age: 82 Year
  Sex: Male

DRUGS (5)
  1. NAMENDA XR [Suspect]
     Active Substance: MEMANTINE HYDROCHLORIDE
     Dosage: 21 MG, QD
     Route: 048
     Dates: start: 201606, end: 201606
  2. SINEMET [Concomitant]
     Active Substance: CARBIDOPA\LEVODOPA
     Indication: PARKINSON^S DISEASE
     Dosage: DAILY
     Route: 048
  3. NAMENDA XR [Suspect]
     Active Substance: MEMANTINE HYDROCHLORIDE
     Indication: DEMENTIA ALZHEIMER^S TYPE
     Dosage: 7 MG, QD
     Route: 048
     Dates: start: 201606, end: 201606
  4. NAMENDA XR [Suspect]
     Active Substance: MEMANTINE HYDROCHLORIDE
     Dosage: 14 MG, QD
     Route: 048
     Dates: start: 201606, end: 201606
  5. BLOOD PRESSURE MEDICATION [Concomitant]
     Active Substance: UNSPECIFIED INGREDIENT
     Indication: HYPOTENSION
     Dosage: DAILY
     Route: 048

REACTIONS (3)
  - Confusional state [Not Recovered/Not Resolved]
  - Amnesia [Not Recovered/Not Resolved]
  - Repetitive speech [Not Recovered/Not Resolved]

NARRATIVE: CASE EVENT DATE: 201606
